FAERS Safety Report 7347603-2 (Version None)
Quarter: 2011Q1

REPORT INFORMATION
  Report Type: 
  Country: None (occurrence: None)
  Receive Date: 20110311
  Receipt Date: 20110304
  Transmission Date: 20110831
  Serious: Yes (Death)
  Sender: FDA-Public Use
  Company Number: GXKR2009DK07838

PATIENT
  Sex: Male

DRUGS (2)
  1. FLUOXETINE [Suspect]
  2. FLUOXETINE [Suspect]
     Dosage: 20 MG, QD
     Route: 064
     Dates: end: 20080821

REACTIONS (5)
  - DRUG EXPOSURE VIA BREAST MILK [None]
  - CEREBRAL DISORDER [None]
  - CARDIOVASCULAR DISORDER [None]
  - DRUG EXPOSURE DURING PREGNANCY [None]
  - SMALL FOR DATES BABY [None]
